FAERS Safety Report 5401684-1 (Version None)
Quarter: 2007Q3

REPORT INFORMATION
  Report Type: 
  Country: None (occurrence: None)
  Receive Date: 20070731
  Receipt Date: 20070717
  Transmission Date: 20080115
  Serious: Yes (Other)
  Sender: FDA-Public Use
  Company Number: CL-PFIZER INC-2007060880

PATIENT
  Sex: Male

DRUGS (1)
  1. VARENICLINE TABLETS [Suspect]
     Route: 048

REACTIONS (1)
  - SCLERITIS [None]
